FAERS Safety Report 14914258 (Version 1)
Quarter: 2018Q2

REPORT INFORMATION
  Report Type: Spontaneous
  Country: US (occurrence: US)
  Receive Date: 20180501
  Receipt Date: 20180501
  Transmission Date: 20180711
  Serious: No
  Sender: FDA-Public Use
  Company Number: None

PATIENT
  Age: 70 Year
  Sex: Female

DRUGS (1)
  1. SPIRONOLACTONE. [Suspect]
     Active Substance: SPIRONOLACTONE
     Route: 048
     Dates: start: 20171223, end: 20180122

REACTIONS (4)
  - Product substitution issue [None]
  - Abdominal discomfort [None]
  - Feeling abnormal [None]
  - Product odour abnormal [None]

NARRATIVE: CASE EVENT DATE: 20180122
